FAERS Safety Report 14019474 (Version 1)
Quarter: 2017Q3

REPORT INFORMATION
  Report Type: Spontaneous
  Country: CN (occurrence: CN)
  Receive Date: 20170928
  Receipt Date: 20170928
  Transmission Date: 20171128
  Serious: Yes (Other)
  Sender: FDA-Public Use
  Company Number: CN-009507513-1709CHN011508

PATIENT
  Age: 32 Year
  Sex: Male

DRUGS (6)
  1. EZETROL [Suspect]
     Active Substance: EZETIMIBE
     Indication: HYPERCHOLESTEROLAEMIA
     Dosage: 10 MG, QD
     Route: 048
     Dates: start: 2017
  2. LOTENSIN [Concomitant]
     Active Substance: BENAZEPRIL HYDROCHLORIDE
     Dosage: 10 MG (10 MG X 1, LOTE), QD (VISIT THE OUTPATIENT DEPARTMENT IN TIME IN CASE OF IRRITABLE DRY COUGH)
     Route: 048
     Dates: start: 2017
  3. METOPROLOL SUCCINATE. [Concomitant]
     Active Substance: METOPROLOL SUCCINATE
     Dosage: 47.5 MG (47.5 MG X 7), QD
     Route: 048
     Dates: start: 2017
  4. ASPIRIN. [Concomitant]
     Active Substance: ASPIRIN
     Dosage: 0.1 G (0.1 G X 30), QPM (LIFELONG ADMINISTRATION IN CASE OF NO CONTRAINDICATION)
     Route: 048
     Dates: start: 2017
  5. LIPITOR [Concomitant]
     Active Substance: ATORVASTATIN CALCIUM
     Dosage: 20 MG (20 MG X 7, LIPITOR), QPM
     Route: 048
     Dates: start: 2017
  6. IRON (UNSPECIFIED) (+) VITAMINS (UNSPECIFIED) [Concomitant]
     Dosage: 10 ML (10 ML X10), BID AFTER MEAL
     Route: 048
     Dates: start: 2017

REACTIONS (1)
  - Gastrointestinal haemorrhage [Unknown]

NARRATIVE: CASE EVENT DATE: 2017
